FAERS Safety Report 9032788 (Version 1)
Quarter: 2013Q1

REPORT INFORMATION
  Report Type: Spontaneous
  Country: US (occurrence: US)
  Receive Date: 20130128
  Receipt Date: 20130128
  Transmission Date: 20140127
  Serious: No
  Sender: FDA-Public Use
  Company Number: US-BIOGENIDEC-2013BI005635

PATIENT
  Age: 54 Year
  Sex: Male

DRUGS (2)
  1. TYSABRI [Suspect]
     Indication: MULTIPLE SCLEROSIS
     Route: 042
     Dates: start: 20121005
  2. AVONEX [Concomitant]
     Indication: MULTIPLE SCLEROSIS
     Route: 030
     Dates: start: 20010531

REACTIONS (6)
  - White blood cell count increased [Recovered/Resolved]
  - Visual impairment [Unknown]
  - Muscle twitching [Unknown]
  - Vitamin D deficiency [Unknown]
  - Multiple sclerosis relapse [Unknown]
  - Fatigue [Unknown]
